FAERS Safety Report 17088970 (Version 5)
Quarter: 2020Q3

REPORT INFORMATION
  Report Type: Report from Study
  Country: TW (occurrence: TW)
  Receive Date: 20191128
  Receipt Date: 20200825
  Transmission Date: 20201102
  Serious: Yes (Death, Hospitalization, Other)
  Sender: FDA-Public Use
  Company Number: TW-ACTELION-A-CH2017-161161

PATIENT
  Age: 24 Year
  Sex: Male

DRUGS (3)
  1. REMODULIN [Concomitant]
     Active Substance: TREPROSTINIL
     Indication: PULMONARY ARTERIAL HYPERTENSION
     Dosage: 200 MCG, QD
     Route: 058
     Dates: start: 20181206, end: 20200822
  2. REVATIO [Concomitant]
     Active Substance: SILDENAFIL CITRATE
     Indication: PULMONARY ARTERIAL HYPERTENSION
     Dosage: 20 MG, TID
     Route: 048
     Dates: end: 20200822
  3. OPSUMIT [Suspect]
     Active Substance: MACITENTAN
     Indication: PULMONARY ARTERIAL HYPERTENSION
     Dosage: 10 MG, QD
     Route: 048
     Dates: start: 201503, end: 20200822

REACTIONS (8)
  - Disease progression [Unknown]
  - Pericardial effusion [Unknown]
  - Death [Fatal]
  - Pulmonary arterial hypertension [Unknown]
  - Tachycardia [Unknown]
  - Right ventricular dysfunction [Unknown]
  - Oedema peripheral [Unknown]
  - Arrhythmia [Unknown]

NARRATIVE: CASE EVENT DATE: 20171015
